FAERS Safety Report 9954150 (Version 1)
Quarter: 2014Q1

REPORT INFORMATION
  Report Type: Spontaneous
  Country: US (occurrence: US)
  Receive Date: 20140304
  Receipt Date: 20140304
  Transmission Date: 20141002
  Serious: No
  Sender: FDA-Public Use
  Company Number: US-ABBVIE-13P-163-1078612-00

PATIENT
  Sex: Female
  Weight: 99.88 kg

DRUGS (17)
  1. HUMIRA [Suspect]
     Indication: RHEUMATOID ARTHRITIS
     Dates: start: 2006, end: 2008
  2. HUMIRA [Suspect]
     Dates: start: 2009
  3. FLU SHOT [Suspect]
     Indication: PRODUCT USED FOR UNKNOWN INDICATION
     Dates: start: 2009, end: 2009
  4. METHOTREXATE [Suspect]
     Indication: PRODUCT USED FOR UNKNOWN INDICATION
     Dates: end: 2008
  5. METHOTREXATE [Suspect]
     Dates: start: 2009
  6. DIOVAN [Concomitant]
     Indication: BLOOD PRESSURE
  7. OMEPRAZOLE [Concomitant]
     Indication: GASTRITIS PROPHYLAXIS
  8. TOPROL [Concomitant]
     Indication: CARDIAC DISORDER
  9. FOSAMAX [Concomitant]
     Indication: BONE DISORDER
  10. METFORMIN [Concomitant]
     Indication: DIABETES MELLITUS
  11. AMARYL [Concomitant]
     Indication: DIABETES MELLITUS
  12. ECOTRIN [Concomitant]
     Indication: PRODUCT USED FOR UNKNOWN INDICATION
  13. FOLIC ACID [Concomitant]
     Indication: PRODUCT USED FOR UNKNOWN INDICATION
  14. HYDROCODONE [Concomitant]
     Indication: PAIN
  15. MULTIVITAMIN [Concomitant]
     Indication: PRODUCT USED FOR UNKNOWN INDICATION
  16. VITAMIN D [Concomitant]
     Indication: PRODUCT USED FOR UNKNOWN INDICATION
  17. ALLEGRA [Concomitant]
     Indication: HYPERSENSITIVITY

REACTIONS (1)
  - Rheumatoid arthritis [Recovered/Resolved]
